FAERS Safety Report 5290914-5 (Version None)
Quarter: 2007Q2

REPORT INFORMATION
  Report Type: 
  Country: None (occurrence: None)
  Receive Date: 20070409
  Receipt Date: 20070328
  Transmission Date: 20071010
  Serious: Yes (Other)
  Sender: FDA-Public Use
  Company Number: BR-PFIZER INC-2007025473

PATIENT

DRUGS (3)
  1. VORICONAZOLE [Suspect]
     Indication: FUNGAL SEPSIS
     Dosage: FREQ:BID: EVERYDAY
     Route: 042
  2. FLUCONAZOLE [Suspect]
     Indication: FUNGAL SEPSIS
  3. MEROPENEM [Suspect]

REACTIONS (4)
  - LEUKOCYTOSIS [None]
  - PATHOGEN RESISTANCE [None]
  - PYREXIA [None]
  - RASH [None]
